FAERS Safety Report 18306849 (Version 1)
Quarter: 2020Q3

REPORT INFORMATION
  Report Type: Spontaneous
  Country: US (occurrence: US)
  Receive Date: 20200923
  Receipt Date: 20200923
  Transmission Date: 20201103
  Serious: Yes (Life-Threatening, Hospitalization, Other)
  Sender: FDA-Public Use
  Company Number: None

PATIENT
  Age: 61 Year
  Sex: Male
  Weight: 258 kg

DRUGS (1)
  1. HYDROCHLOROTHIAZIDE/LISINOPRIL (HYDROCHLOROTHIAZIDE 25MG/LISINOPRIL 20 [Suspect]
     Active Substance: HYDROCHLOROTHIAZIDE\LISINOPRIL
     Indication: HYPERTENSION
     Route: 048
     Dates: start: 20130214, end: 20200228

REACTIONS (1)
  - Angioedema [None]

NARRATIVE: CASE EVENT DATE: 20200228
